FAERS Safety Report 18632803 (Version 2)
Quarter: 2020Q4

REPORT INFORMATION
  Report Type: Spontaneous
  Country: FR (occurrence: FR)
  Receive Date: 20201218
  Receipt Date: 20201224
  Transmission Date: 20210114
  Serious: Yes (Death, Other)
  Sender: FDA-Public Use
  Company Number: FR-PFIZER INC-2020489300

PATIENT
  Age: 51 Year
  Sex: Female

DRUGS (5)
  1. CODEINE CAMPHOSULFONATE [Interacting]
     Active Substance: CODEINE CAMPHORSULFONATE
     Dosage: UNK
  2. LYRICA [Suspect]
     Active Substance: PREGABALIN
     Dosage: UNK
  3. MORPHINE [Suspect]
     Active Substance: MORPHINE
     Dosage: UNK
  4. METHADONE HYDROCHLORIDE. [Interacting]
     Active Substance: METHADONE HYDROCHLORIDE
     Dosage: UNK
  5. DIAZEPAM. [Suspect]
     Active Substance: DIAZEPAM
     Dosage: UNK

REACTIONS (4)
  - Intentional product misuse [Fatal]
  - Asphyxia [Fatal]
  - Drug interaction [Fatal]
  - Visceral congestion [Fatal]
